FAERS Safety Report 13675630 (Version 2)
Quarter: 2017Q3

REPORT INFORMATION
  Report Type: Spontaneous
  Country: FR (occurrence: FR)
  Receive Date: 20170621
  Receipt Date: 20170708
  Transmission Date: 20171127
  Serious: Yes (Hospitalization, Other)
  Sender: FDA-Public Use
  Company Number: FR-ABBVIE-17P-056-2013171-00

PATIENT
  Age: 54 Year
  Sex: Female

DRUGS (6)
  1. SEROPLEX [Concomitant]
     Active Substance: ESCITALOPRAM OXALATE
     Indication: PRODUCT USED FOR UNKNOWN INDICATION
  2. IVERMECTIN. [Suspect]
     Active Substance: IVERMECTIN
     Indication: PRODUCT USED FOR UNKNOWN INDICATION
     Route: 048
  3. XEROQUEL [Concomitant]
     Active Substance: QUETIAPINE FUMARATE
     Indication: PRODUCT USED FOR UNKNOWN INDICATION
  4. PRODILANTIN [Concomitant]
     Active Substance: FOSPHENYTOIN SODIUM
     Indication: EPILEPSY
  5. DEPAKINE [Suspect]
     Active Substance: VALPROATE SODIUM
     Indication: EPILEPSY
     Route: 065
     Dates: end: 201705
  6. DEPAKINE [Suspect]
     Active Substance: VALPROATE SODIUM
     Route: 048
     Dates: start: 201705, end: 20170522

REACTIONS (19)
  - Dermatitis bullous [Unknown]
  - Dyspnoea [Unknown]
  - Oedema [Unknown]
  - Superinfection [Unknown]
  - Drug reaction with eosinophilia and systemic symptoms [Unknown]
  - Multiple organ dysfunction syndrome [Unknown]
  - Pain [Unknown]
  - Toxic skin eruption [Unknown]
  - Eosinophilia [Unknown]
  - Drug withdrawal convulsions [Unknown]
  - Multiple injuries [Unknown]
  - Secretion discharge [Unknown]
  - Infectious mononucleosis [Unknown]
  - Acute kidney injury [Unknown]
  - Hypotension [Unknown]
  - Generalised erythema [Unknown]
  - Burning sensation [Unknown]
  - Cell death [Unknown]
  - Thrombocytopenia [Unknown]

NARRATIVE: CASE EVENT DATE: 20170520
